FAERS Safety Report 14206402 (Version 2)
Quarter: 2017Q4

REPORT INFORMATION
  Report Type: Report from Study
  Country: AU (occurrence: AU)
  Receive Date: 20171120
  Receipt Date: 20171129
  Transmission Date: 20180321
  Serious: Yes (Hospitalization, Other)
  Sender: FDA-Public Use
  Company Number: AU-PFIZER INC-2017483620

PATIENT

DRUGS (2)
  1. RAMIPRIL. [Suspect]
     Active Substance: RAMIPRIL
     Dosage: UNK
  2. FUROSEMIDE. [Interacting]
     Active Substance: FUROSEMIDE
     Dosage: UNK

REACTIONS (2)
  - Drug interaction [Unknown]
  - Acute kidney injury [Unknown]
